FAERS Safety Report 21393445 (Version 13)
Quarter: 2023Q1

REPORT INFORMATION
  Report Type: Report from Study
  Country: US (occurrence: US)
  Receive Date: 20220929
  Receipt Date: 20230131
  Transmission Date: 20230418
  Serious: No
  Sender: FDA-Public Use
  Company Number: US-NOVARTISTESTPH-NVSC2022US220625

PATIENT
  Age: 48 Year
  Sex: Female

DRUGS (6)
  1. KESIMPTA [Suspect]
     Active Substance: OFATUMUMAB
     Indication: Multiple sclerosis
     Dosage: 20 MG, QW (0.4 ML)
     Route: 058
     Dates: start: 20220927
  2. KESIMPTA [Suspect]
     Active Substance: OFATUMUMAB
     Dosage: UNK
     Route: 065
     Dates: start: 20221005
  3. KESIMPTA [Suspect]
     Active Substance: OFATUMUMAB
     Dosage: UNK, OTHER (EVERY 4TH TUESDAY)
     Route: 065
  4. KESIMPTA [Suspect]
     Active Substance: OFATUMUMAB
     Dosage: UNK, QMO
     Route: 065
  5. KESIMPTA [Suspect]
     Active Substance: OFATUMUMAB
     Dosage: UNK, QMO
     Route: 065
     Dates: start: 20221123
  6. KESIMPTA [Suspect]
     Active Substance: OFATUMUMAB
     Dosage: UNK, QMO (DOSAGE: 20MG/0.4ML)
     Route: 058
     Dates: start: 20221004

REACTIONS (14)
  - Nasal congestion [Recovered/Resolved]
  - Alopecia [Unknown]
  - Morning sickness [Unknown]
  - Peripheral swelling [Unknown]
  - Ear infection [Unknown]
  - Pain in extremity [Unknown]
  - Weight increased [Unknown]
  - Sinusitis [Unknown]
  - Head discomfort [Recovered/Resolved]
  - Headache [Unknown]
  - Pyrexia [Not Recovered/Not Resolved]
  - Fatigue [Not Recovered/Not Resolved]
  - Nausea [Not Recovered/Not Resolved]
  - Injection site pain [Unknown]

NARRATIVE: CASE EVENT DATE: 20220927
